FAERS Safety Report 11456013 (Version 1)
Quarter: 2015Q3

REPORT INFORMATION
  Report Type: Spontaneous
  Country: CN (occurrence: CN)
  Receive Date: 20150903
  Receipt Date: 20150903
  Transmission Date: 20151125
  Serious: Yes (Death)
  Sender: FDA-Public Use
  Company Number: CN-BAUSCH-DSA_61040_2012

PATIENT
  Age: 62 Year
  Sex: Female

DRUGS (12)
  1. 5-FU [Suspect]
     Active Substance: FLUOROURACIL
     Dosage: EVERY CYCLE
     Route: 041
     Dates: start: 20121102, end: 20121102
  2. PLACEBO [Suspect]
     Active Substance: UNSPECIFIED INGREDIENT
     Indication: COLON CANCER METASTATIC
     Dosage: 1 UNIT; EVERY OTHER WEEK
     Route: 042
     Dates: start: 20121102, end: 20121102
  3. LEUCOVORIN. [Suspect]
     Active Substance: LEUCOVORIN
     Indication: COLON CANCER METASTATIC
     Dosage: EVERY CYCLE
     Route: 042
     Dates: start: 20121102, end: 20121102
  4. XELODA [Concomitant]
     Active Substance: CAPECITABINE
     Indication: PRODUCT USED FOR UNKNOWN INDICATION
     Dates: start: 20120224, end: 20120412
  5. OXALIPLATIN. [Concomitant]
     Active Substance: OXALIPLATIN
     Dates: start: 20120628, end: 20120906
  6. XELODA [Concomitant]
     Active Substance: CAPECITABINE
     Dates: start: 20120628, end: 20120906
  7. AMLODIPINE [Concomitant]
     Active Substance: AMLODIPINE BESYLATE
     Indication: PRODUCT USED FOR UNKNOWN INDICATION
     Dates: start: 20121009
  8. TROPISETRON [Concomitant]
     Active Substance: TROPISETRON
     Indication: PRODUCT USED FOR UNKNOWN INDICATION
     Dates: start: 20121102, end: 20121103
  9. 5-FU [Suspect]
     Active Substance: FLUOROURACIL
     Indication: COLON CANCER METASTATIC
     Dosage: EVERY CYCLE
     Route: 040
     Dates: start: 20121102, end: 20121102
  10. OXALIPLATIN. [Concomitant]
     Active Substance: OXALIPLATIN
     Indication: PRODUCT USED FOR UNKNOWN INDICATION
     Dates: start: 20120224, end: 20120412
  11. SMECTITE [Concomitant]
     Active Substance: MONTMORILLONITE
     Indication: PRODUCT USED FOR UNKNOWN INDICATION
     Dates: start: 20121030
  12. IRINOTECAN [Suspect]
     Active Substance: IRINOTECAN
     Indication: COLON CANCER METASTATIC
     Dosage: EVERY CYCLE
     Route: 042
     Dates: start: 20121102, end: 20121102

REACTIONS (1)
  - Loss of consciousness [Fatal]

NARRATIVE: CASE EVENT DATE: 20121111
